FAERS Safety Report 11807871 (Version 2)
Quarter: 2015Q4

REPORT INFORMATION
  Report Type: Spontaneous
  Country: US (occurrence: US)
  Receive Date: 20151207
  Receipt Date: 20151231
  Transmission Date: 20160305
  Serious: Yes (Other)
  Sender: FDA-Public Use
  Company Number: US-BAYER-2015-477736

PATIENT
  Age: 65 Year
  Sex: Male

DRUGS (5)
  1. DIFLUCAN [Concomitant]
     Active Substance: FLUCONAZOLE
  2. TADALAFIL [Concomitant]
     Active Substance: TADALAFIL
     Dosage: 20 MG, QD
  3. CIPROFLOXACIN. [Suspect]
     Active Substance: CIPROFLOXACIN
     Indication: ANTIBIOTIC THERAPY
  4. DOXYCYCLINE. [Concomitant]
     Active Substance: DOXYCYCLINE
  5. LINEZOLID. [Concomitant]
     Active Substance: LINEZOLID

REACTIONS (4)
  - Staphylococcal sepsis [None]
  - Drug ineffective [None]
  - Wound infection fungal [None]
  - Product use issue [None]

NARRATIVE: CASE EVENT DATE: 2009
